FAERS Safety Report 8241481-5 (Version None)
Quarter: 2012Q1

REPORT INFORMATION
  Report Type: 
  Country: None (occurrence: None)
  Receive Date: 20120328
  Receipt Date: 20120316
  Transmission Date: 20120608
  Serious: Yes (Other)
  Sender: FDA-Public Use
  Company Number: AU-ROCHE-1050394

PATIENT
  Sex: Male
  Weight: 95.1 kg

DRUGS (3)
  1. ACETAMINOPHEN [Concomitant]
     Dates: start: 20110127
  2. VEMURAFENIB [Suspect]
     Indication: METASTATIC MALIGNANT MELANOMA
     Dosage: DATE OF LAST DOSE PRIOR TO EVENT: 01/MAR/2012
     Route: 048
     Dates: start: 20110131
  3. PREDNEFRIN FORTE [Concomitant]
     Dates: start: 20120120

REACTIONS (1)
  - MALIGNANT MELANOMA IN SITU [None]
